FAERS Safety Report 10075851 (Version 2)
Quarter: 2014Q2

REPORT INFORMATION
  Report Type: Spontaneous
  Country: US (occurrence: US)
  Receive Date: 20140414
  Receipt Date: 20140527
  Transmission Date: 20141212
  Serious: Yes (Hospitalization)
  Sender: FDA-Public Use
  Company Number: US-PFIZER INC-2014103845

PATIENT
  Age: 76 Year
  Sex: Female
  Weight: 68.93 kg

DRUGS (3)
  1. LYRICA [Suspect]
     Indication: FIBROMYALGIA
     Dosage: 50 MG, 2X/DAY
  2. IRBESARTAN [Concomitant]
     Indication: HYPERTENSION
     Dosage: UNK
  3. FENOFIBRATE [Concomitant]
     Indication: BLOOD CHOLESTEROL INCREASED
     Dosage: UNK

REACTIONS (2)
  - Gallbladder disorder [Unknown]
  - Feeling abnormal [Unknown]
